FAERS Safety Report 6716410-3 (Version None)
Quarter: 2010Q2

REPORT INFORMATION
  Report Type: 
  Country: None (occurrence: None)
  Receive Date: 20100507
  Receipt Date: 20100502
  Transmission Date: 20101027
  Serious: Yes (Hospitalization)
  Sender: FDA-Public Use
  Company Number: US-ABBOTT-08P-163-0469865-00

PATIENT
  Sex: Female
  Weight: 38.59 kg

DRUGS (9)
  1. HUMIRA [Suspect]
     Indication: CROHN'S DISEASE
  2. HUMIRA [Suspect]
  3. HUMIRA [Suspect]
     Indication: CROHN'S DISEASE
     Dosage: 80MG ONCE
     Route: 058
     Dates: start: 20050401
  4. HUMIRA [Suspect]
     Route: 058
     Dates: start: 20080701
  5. IMURAN [Concomitant]
     Indication: CROHN'S DISEASE
  6. ENDOCORT [Concomitant]
     Indication: CROHN'S DISEASE
  7. CIPRO [Concomitant]
     Indication: DRUG USE FOR UNKNOWN INDICATION
  8. IRON [Concomitant]
     Indication: MINERAL SUPPLEMENTATION
  9. PENTASA [Concomitant]
     Indication: DRUG USE FOR UNKNOWN INDICATION

REACTIONS (3)
  - ILEOSTOMY [None]
  - INJECTION SITE HAEMATOMA [None]
  - INJECTION SITE PAIN [None]
